FAERS Safety Report 5216177-4 (Version None)
Quarter: 2007Q1

REPORT INFORMATION
  Report Type: 
  Country: None (occurrence: None)
  Receive Date: 20070123
  Receipt Date: 20070109
  Transmission Date: 20070707
  Serious: Yes (Other)
  Sender: FDA-Public Use
  Company Number: US-ELI_LILLY_AND_COMPANY-US200701002715

PATIENT
  Age: 23 Year
  Sex: Male

DRUGS (4)
  1. FLUOXETINE HYDROCHLORIDE [Suspect]
     Dosage: 80 MG, DAILY (1/D)
     Route: 048
  2. CYTARABINE [Concomitant]
     Indication: ACUTE MYELOID LEUKAEMIA (IN REMISSION)
     Dosage: UNK, 2/D
     Route: 042
  3. METHADONE HYDROCHLORIDE [Concomitant]
     Dosage: 85 MG, UNK
  4. QUETIAPINE FUMARATE [Concomitant]
     Indication: ANXIETY
     Dosage: 12.5 MG, EVERY 4 HRS
     Route: 048

REACTIONS (7)
  - ANAEMIA [None]
  - DRUG INTERACTION [None]
  - MUCOSAL INFLAMMATION [None]
  - NEUTROPENIA [None]
  - PYREXIA [None]
  - SEROTONIN SYNDROME [None]
  - THROMBOCYTOPENIA [None]
